FAERS Safety Report 14190875 (Version 1)
Quarter: 2017Q4

REPORT INFORMATION
  Report Type: Spontaneous
  Country: CA (occurrence: CA)
  Receive Date: 20171115
  Receipt Date: 20171115
  Transmission Date: 20180321
  Serious: Yes (Other)
  Sender: FDA-Public Use
  Company Number: CA-PFIZER INC-2017479286

PATIENT
  Age: 16 Year
  Sex: Female

DRUGS (2)
  1. DILANTIN [Suspect]
     Active Substance: PHENYTOIN
     Dosage: 230 MG, 2X/DAY (CHEWABALES)
     Dates: start: 2015
  2. DILANTIN [Suspect]
     Active Substance: PHENYTOIN
     Dosage: 200 MG, UNK

REACTIONS (4)
  - Growth retardation [Unknown]
  - Hypertrichosis [Unknown]
  - Gingival hypertrophy [Unknown]
  - Delayed puberty [Unknown]
